FAERS Safety Report 8625423-6 (Version None)
Quarter: 2012Q3

REPORT INFORMATION
  Report Type: 
  Country: None (occurrence: None)
  Receive Date: 20120827
  Receipt Date: 20120820
  Transmission Date: 20120928
  Serious: Yes (Congenital Anomaly)
  Sender: FDA-Public Use
  Company Number: US-TEVA-305289USA

PATIENT
  Sex: Male

DRUGS (1)
  1. COPAXONE [Suspect]
     Route: 065

REACTIONS (1)
  - CONGENITAL HEART VALVE DISORDER [None]
